FAERS Safety Report 10954256 (Version 1)
Quarter: 2015Q1

REPORT INFORMATION
  Report Type: Spontaneous
  Country: GB (occurrence: GB)
  Receive Date: 20150325
  Receipt Date: 20150325
  Transmission Date: 20150721
  Serious: Yes (Hospitalization, Other)
  Sender: FDA-Public Use
  Company Number: GB-WATSON-2015-06129

PATIENT
  Age: 78 Year
  Sex: Female
  Weight: 69.85 kg

DRUGS (13)
  1. ENALAPRIL [Concomitant]
     Active Substance: ENALAPRIL
     Indication: HYPERTENSION
     Dosage: 10 MG, UNKNOWN
     Route: 048
     Dates: start: 1995
  2. DICYCLOVERINE [Concomitant]
     Indication: ENDOMETRIOSIS
     Dosage: 10 MG, UNKNOWN
     Route: 048
     Dates: start: 1980
  3. FUROSEMIDE. [Concomitant]
     Active Substance: FUROSEMIDE
     Indication: DIURETIC THERAPY
     Dosage: 20 MG, UNKNOWN
     Route: 065
     Dates: start: 2014
  4. BROMELAIN [Concomitant]
     Active Substance: BROMELAINS
     Indication: PRODUCT USED FOR UNKNOWN INDICATION
     Dosage: 1 DF, BID
     Route: 065
     Dates: start: 1985
  5. CHONDROITIN [Concomitant]
     Active Substance: CHONDROITIN
     Indication: PRODUCT USED FOR UNKNOWN INDICATION
     Dosage: 100 MG, BID (STOPPED 09/2014 AND RESTARTED 02/2015)
     Route: 065
     Dates: start: 1985
  6. TAMOXIFEN [Concomitant]
     Active Substance: TAMOXIFEN
     Indication: BREAST CANCER
     Dosage: 20 MG, UNKNOWN
     Route: 048
     Dates: start: 201212, end: 201502
  7. ALLOPURINOL (UNKNOWN) [Suspect]
     Active Substance: ALLOPURINOL
     Indication: GOUT
     Dosage: 100 MG, UNKNOWN
     Route: 048
     Dates: start: 201408, end: 201409
  8. PARACETAMOL [Concomitant]
     Active Substance: ACETAMINOPHEN
     Indication: BACK PAIN
     Dosage: 500 MG, PRN (FOUR TIMES DAILY)
     Route: 065
     Dates: start: 1995
  9. LANSOPRAZOLE. [Concomitant]
     Active Substance: LANSOPRAZOLE
     Indication: GASTRIC ULCER
     Dosage: 30 MG, UNKNOWN
     Route: 065
     Dates: start: 1995
  10. CARBIMAZOLE [Concomitant]
     Active Substance: CARBIMAZOLE
     Indication: THYROID DISORDER
     Dosage: 5 MG, UNKNOWN
     Route: 048
     Dates: start: 1980
  11. QUININE SULPHATE [Concomitant]
     Active Substance: QUININE SULFATE
     Indication: MUSCLE SPASMS
     Dosage: 300 MG, UNKNOWN
     Route: 065
     Dates: start: 1985
  12. CALCIUM CARBONATE. [Concomitant]
     Active Substance: CALCIUM CARBONATE
     Indication: BONE DISORDER
     Dosage: 5 MG, UNKNOWN
     Route: 048
     Dates: start: 1990
  13. GLUCOSAMINE [Concomitant]
     Active Substance: GLUCOSAMINE
     Indication: PRODUCT USED FOR UNKNOWN INDICATION
     Dosage: 500 MG, BID (STOPPED 09/2014 AND RESTARTED 02/2015)
     Route: 065
     Dates: start: 1985

REACTIONS (3)
  - Depression [Recovering/Resolving]
  - Cataract [Recovering/Resolving]
  - Anxiety [Recovering/Resolving]

NARRATIVE: CASE EVENT DATE: 201409
